FAERS Safety Report 9862174 (Version 5)
Quarter: 2015Q1

REPORT INFORMATION
  Report Type: Spontaneous
  Country: US (occurrence: US)
  Receive Date: 20140203
  Receipt Date: 20150210
  Transmission Date: 20150721
  Serious: Yes (Death, Other)
  Sender: FDA-Public Use
  Company Number: US-ASTELLAS-2013US013535

PATIENT
  Age: 76 Year
  Sex: Male
  Weight: 116 kg

DRUGS (16)
  1. CELEXA [Concomitant]
     Active Substance: CITALOPRAM HYDROBROMIDE
     Indication: DEPRESSION
     Route: 065
  2. TRAMADOL [Concomitant]
     Active Substance: TRAMADOL
     Indication: PAIN
     Route: 065
  3. ZOMETA [Concomitant]
     Active Substance: ZOLEDRONIC ACID
     Indication: PRODUCT USED FOR UNKNOWN INDICATION
     Route: 065
  4. LASIX [Concomitant]
     Active Substance: FUROSEMIDE
     Indication: FLUID RETENTION
     Route: 065
  5. ALLOPURINOL. [Concomitant]
     Active Substance: ALLOPURINOL
     Indication: GOUT
     Route: 065
  6. ZETIA [Concomitant]
     Active Substance: EZETIMIBE
     Indication: BLOOD CHOLESTEROL INCREASED
     Route: 065
  7. POTASSIUM [Concomitant]
     Active Substance: POTASSIUM
     Indication: PRODUCT USED FOR UNKNOWN INDICATION
     Route: 065
  8. CELEBREX [Concomitant]
     Active Substance: CELECOXIB
     Indication: PRODUCT USED FOR UNKNOWN INDICATION
     Route: 065
  9. METFORMIN [Concomitant]
     Active Substance: METFORMIN HYDROCHLORIDE
     Indication: DIABETES MELLITUS
     Route: 065
  10. LOSARTAN [Concomitant]
     Active Substance: LOSARTAN
     Indication: HYPERTENSION
     Route: 065
  11. COUMADIN [Concomitant]
     Active Substance: WARFARIN SODIUM
     Indication: ANTICOAGULANT THERAPY
     Route: 065
  12. COREG [Concomitant]
     Active Substance: CARVEDILOL
     Indication: PROPHYLAXIS
     Route: 065
  13. OXYCODONE [Concomitant]
     Active Substance: OXYCODONE
     Indication: PAIN
     Route: 065
  14. XTANDI [Suspect]
     Active Substance: ENZALUTAMIDE
     Indication: PROSTATE CANCER
     Route: 048
     Dates: start: 201308, end: 20150116
  15. ARICEPT [Concomitant]
     Active Substance: DONEPEZIL HYDROCHLORIDE
     Indication: DEMENTIA ALZHEIMER^S TYPE
     Route: 065
  16. FLEXERIL [Concomitant]
     Active Substance: CYCLOBENZAPRINE HYDROCHLORIDE
     Indication: MUSCLE RELAXANT THERAPY
     Route: 065

REACTIONS (6)
  - Fall [Unknown]
  - Cardiac failure [Fatal]
  - Constipation [Unknown]
  - Drug dose omission [Unknown]
  - Blister [Recovered/Resolved]
  - Dementia [Not Recovered/Not Resolved]

NARRATIVE: CASE EVENT DATE: 201401
